FAERS Safety Report 19607712 (Version 2)
Quarter: 2021Q4

REPORT INFORMATION
  Report Type: Spontaneous
  Country: GB (occurrence: GB)
  Receive Date: 20210726
  Receipt Date: 20211126
  Transmission Date: 20220303
  Serious: Yes (Other)
  Sender: FDA-Public Use
  Company Number: GB-ORGANON-O2107GBR001459

PATIENT
  Sex: Female

DRUGS (1)
  1. NEXPLANON [Suspect]
     Active Substance: ETONOGESTREL
     Dosage: 1 IMPLANT (68 MG)
     Dates: start: 20200916

REACTIONS (4)
  - Abortion spontaneous [Unknown]
  - Abdominal pain [Unknown]
  - Heavy menstrual bleeding [Unknown]
  - Unintended pregnancy [Unknown]
